FAERS Safety Report 8448962-X (Version None)
Quarter: 2012Q2

REPORT INFORMATION
  Report Type: 
  Country: None (occurrence: None)
  Receive Date: 20120619
  Receipt Date: 20120615
  Transmission Date: 20120825
  Serious: Yes (Other)
  Sender: FDA-Public Use
  Company Number: US-BAYER-200940709NA

PATIENT
  Age: 75 Year
  Sex: Female
  Weight: 88.435 kg

DRUGS (31)
  1. AMBIEN [Concomitant]
  2. FOSAMAX [Concomitant]
     Dosage: 70 MG, QD
     Route: 048
  3. VERSED [Concomitant]
     Dosage: UNK
     Dates: start: 20060823, end: 20060823
  4. LASIX [Concomitant]
     Dosage: 40 MG, QD
     Route: 048
  5. COLCHICINE [Concomitant]
     Dosage: 0.6 MG, QD
     Route: 048
  6. COMPAZINE [Concomitant]
  7. INSULIN [Concomitant]
     Dosage: UNK
     Dates: start: 20060823, end: 20060823
  8. TRASYLOL [Suspect]
     Indication: MITRAL VALVE REPLACEMENT
  9. VICODIN [Concomitant]
  10. TRASYLOL [Suspect]
     Indication: AORTIC VALVE REPLACEMENT
     Dosage: INJECTION, 10,000
     Route: 042
     Dates: start: 20060824
  11. ASPIRIN [Concomitant]
  12. FLAGYL [Concomitant]
  13. PROTAMINE SULFATE [Concomitant]
     Dosage: UNK
     Dates: start: 20060823, end: 20060823
  14. LANTUS [Concomitant]
  15. TOPROL-XL [Concomitant]
     Dosage: 200 MG, QD
     Route: 048
  16. DIGOXIN [Concomitant]
     Dosage: 0.125 MG, QD
     Route: 048
  17. CRESTOR [Concomitant]
     Dosage: 10 MG, QD
     Route: 048
  18. METAXALONE [Concomitant]
     Dosage: UNK UNK, PRN
     Route: 048
  19. IBUPROFEN [Concomitant]
     Dosage: 800 MG, 1 TO 3 DOSES
     Route: 048
     Dates: start: 20060101
  20. PREVACID [Concomitant]
  21. CELEXA [Concomitant]
  22. DIOVAN [Concomitant]
     Dosage: 320 MG, QD
     Route: 048
  23. ADVAIR DISKUS 100/50 [Concomitant]
     Dosage: 1 PUFF
     Route: 048
  24. CLARITIN [Concomitant]
     Dosage: UNK UNK, PRN
     Route: 048
  25. TRASYLOL [Suspect]
     Indication: TRICUSPID VALVE REPAIR
  26. NORVASC [Concomitant]
     Dosage: 10 MG, QD
     Route: 048
  27. LASIX [Concomitant]
     Dosage: 20 MG, UNK
     Dates: start: 20060823, end: 20060823
  28. ALLOPURINOL [Concomitant]
     Dosage: 150 MG, QD
     Route: 048
  29. HYDRALAZINE HYDROCHLORIDE [Concomitant]
     Dosage: 50 MG, TID (Q8HOURS)
  30. ANCEF [Concomitant]
     Dosage: UNK
     Dates: start: 20060823, end: 20060823
  31. HEPARIN [Concomitant]
     Dosage: UNK
     Dates: start: 20060823, end: 20060823

REACTIONS (11)
  - EMOTIONAL DISTRESS [None]
  - UNEVALUABLE EVENT [None]
  - ANXIETY [None]
  - RENAL INJURY [None]
  - RENAL FAILURE [None]
  - PAIN [None]
  - ANHEDONIA [None]
  - RENAL IMPAIRMENT [None]
  - STRESS [None]
  - FEAR [None]
  - INJURY [None]
